FAERS Safety Report 10033853 (Version 3)
Quarter: 2014Q2

REPORT INFORMATION
  Report Type: Spontaneous
  Country: JP (occurrence: JP)
  Receive Date: 20140325
  Receipt Date: 20140422
  Transmission Date: 20141212
  Serious: Yes (Other)
  Sender: FDA-Public Use
  Company Number: JP-ORION CORPORATION ORION PHARMA-ENT 2014-0049

PATIENT
  Sex: Female

DRUGS (1)
  1. COMTAN [Suspect]
     Route: 048

REACTIONS (1)
  - Anaemia [Not Recovered/Not Resolved]
